FAERS Safety Report 16521362 (Version 10)
Quarter: 2022Q3

REPORT INFORMATION
  Report Type: Report from Study
  Country: US (occurrence: US)
  Receive Date: 20190702
  Receipt Date: 20220803
  Transmission Date: 20221027
  Serious: Yes (Hospitalization)
  Sender: FDA-Public Use
  Company Number: PHEH2019US027146

PATIENT
  Age: 39 Year
  Sex: Female
  Weight: 80.726 kg

DRUGS (7)
  1. TREPROSTINIL [Suspect]
     Active Substance: TREPROSTINIL
     Indication: Pulmonary arterial hypertension
     Dosage: 73 NG/KG/MIN, CONT
     Route: 042
     Dates: start: 20190424
  2. TREPROSTINIL [Suspect]
     Active Substance: TREPROSTINIL
     Dosage: 73 NG/KG/MIN, CONT
     Route: 042
  3. TREPROSTINIL [Suspect]
     Active Substance: TREPROSTINIL
     Dosage: 73 NG/KG/MIN, CONT
     Route: 042
  4. TREPROSTINIL [Suspect]
     Active Substance: TREPROSTINIL
     Dosage: 73 NG/KG/MIN, CONT
     Route: 042
  5. WARFARIN [Concomitant]
     Active Substance: WARFARIN
     Indication: Product used for unknown indication
     Dosage: UNK
     Route: 065
  6. TADALAFIL [Concomitant]
     Active Substance: TADALAFIL
     Dosage: UNK
  7. OPSUMIT [Concomitant]
     Active Substance: MACITENTAN
     Dosage: UNK

REACTIONS (10)
  - Hypervolaemia [Unknown]
  - Vascular device infection [Unknown]
  - Chest pain [Unknown]
  - Chest discomfort [Unknown]
  - Dyspnoea [Unknown]
  - Hyperhidrosis [Unknown]
  - Panic attack [Unknown]
  - Infusion site erythema [Unknown]
  - Catheter site vesicles [Unknown]
  - Device physical property issue [Recovered/Resolved]

NARRATIVE: CASE EVENT DATE: 20190910
